FAERS Safety Report 23854447 (Version 1)
Quarter: 2024Q2

REPORT INFORMATION
  Report Type: Spontaneous
  Country: US (occurrence: None)
  Receive Date: 20240514
  Receipt Date: 20240514
  Transmission Date: 20240715
  Serious: Yes (Disabling)
  Sender: FDA-Public Use
  Company Number: None

PATIENT
  Age: 61 Year
  Sex: Male
  Weight: 92.25 kg

DRUGS (2)
  1. CORTIZONE 10 [Suspect]
     Active Substance: HYDROCORTISONE
     Indication: Rash
     Dosage: OTHER QUANTITY : 1 OUNCE(S);?FREQUENCY : 3 TIMES A DAY;?
     Route: 061
  2. CORTIZONE 10 [Suspect]
     Active Substance: HYDROCORTISONE
     Indication: Urticaria

REACTIONS (2)
  - Topical steroid withdrawal reaction [None]
  - Product use complaint [None]

NARRATIVE: CASE EVENT DATE: 20240427
